FAERS Safety Report 9700283 (Version 1)
Quarter: 2013Q4

REPORT INFORMATION
  Report Type: Spontaneous
  Country: GB (occurrence: GB)
  Receive Date: 20131121
  Receipt Date: 20131121
  Transmission Date: 20140711
  Serious: Yes (Other)
  Sender: FDA-Public Use
  Company Number: GB-JNJFOC-20131109155

PATIENT
  Age: 82 Year
  Sex: Female

DRUGS (4)
  1. HALDOL [Suspect]
     Indication: BIPOLAR DISORDER
     Route: 030
  2. FLUOXETINE [Suspect]
     Indication: DEPRESSION
     Route: 048
  3. FLUOXETINE [Suspect]
     Indication: DEPRESSION
     Route: 048
  4. FLUOXETINE [Suspect]
     Indication: DEPRESSION
     Route: 048

REACTIONS (2)
  - Orthostatic hypotension [Recovering/Resolving]
  - Dizziness [Unknown]
